FAERS Safety Report 19205670 (Version 2)
Quarter: 2021Q3

REPORT INFORMATION
  Report Type: Spontaneous
  Country: US (occurrence: US)
  Receive Date: 20210503
  Receipt Date: 20210908
  Transmission Date: 20211014
  Serious: No
  Sender: FDA-Public Use
  Company Number: US-FARMAPROD-202101-0138

PATIENT
  Sex: Male

DRUGS (18)
  1. OXERVATE [Suspect]
     Active Substance: CENEGERMIN-BKBJ
     Indication: NEUROTROPHIC KERATOPATHY
     Route: 047
     Dates: start: 20210118
  2. ALLOPURINOL. [Concomitant]
     Active Substance: ALLOPURINOL
  3. DOXAZOSIN MESYLATE. [Concomitant]
     Active Substance: DOXAZOSIN MESYLATE
  4. GATIFLOXACIN. [Concomitant]
     Active Substance: GATIFLOXACIN
  5. BESIVANCE [Concomitant]
     Active Substance: BESIFLOXACIN
     Dosage: DROPS SUSPENSION
  6. METOPROLOL SUCCINATE. [Concomitant]
     Active Substance: METOPROLOL SUCCINATE
  7. TAMSULOSIN HYDROCHLORIDE. [Concomitant]
     Active Substance: TAMSULOSIN HYDROCHLORIDE
  8. ACETAZOLAMIDE. [Concomitant]
     Active Substance: ACETAZOLAMIDE
     Dosage: EXTENDED RELEASE CAPSULE
  9. LATANOPROST. [Concomitant]
     Active Substance: LATANOPROST
  10. OXERVATE [Suspect]
     Active Substance: CENEGERMIN-BKBJ
     Indication: ULCERATIVE KERATITIS
  11. ERYTHROMYCIN. [Concomitant]
     Active Substance: ERYTHROMYCIN
  12. PREDNISOLONE/NEPAFENAC [Concomitant]
  13. BRIMONIDINE TARTRATE. [Concomitant]
     Active Substance: BRIMONIDINE TARTRATE
  14. DILTIAZEM. [Concomitant]
     Active Substance: DILTIAZEM
     Dosage: EXTENDED RELEASE CAPSULE
  15. FINASTERIDE. [Concomitant]
     Active Substance: FINASTERIDE
  16. ATORVASTATIN CALCIUM. [Concomitant]
     Active Substance: ATORVASTATIN CALCIUM
  17. ELIQUIS [Concomitant]
     Active Substance: APIXABAN
  18. RAMIPRIL. [Concomitant]
     Active Substance: RAMIPRIL

REACTIONS (1)
  - Drug ineffective [Unknown]
